FAERS Safety Report 4367466-7 (Version None)
Quarter: 2004Q2

REPORT INFORMATION
  Report Type: 
  Country: None (occurrence: None)
  Receive Date: 20040520
  Receipt Date: 20040507
  Transmission Date: 20050107
  Serious: Yes (Hospitalization)
  Sender: FDA-Public Use
  Company Number: 601249

PATIENT
  Age: 70 Year
  Sex: Female

DRUGS (5)
  1. POLYGAM S/D [Suspect]
     Indication: NEUROPATHY
     Dosage: BIW; INTRAVENOUS
     Route: 042
     Dates: start: 20040503, end: 20040504
  2. VITAMIN B-12 [Concomitant]
  3. PLAVIX [Concomitant]
  4. NEXIUM [Concomitant]
  5. SALICYLATES [Concomitant]

REACTIONS (4)
  - DIARRHOEA [None]
  - HEADACHE [None]
  - MYALGIA [None]
  - NAUSEA [None]
